FAERS Safety Report 5345041-5 (Version None)
Quarter: 2007Q2

REPORT INFORMATION
  Report Type: 
  Country: None (occurrence: None)
  Receive Date: 20070425
  Receipt Date: 20060502
  Transmission Date: 20071010
  Serious: Yes (Other)
  Sender: FDA-Public Use
  Company Number: WAES 0605USA00583

PATIENT
  Age: 6 Year
  Sex: Female
  Weight: 17.2367 kg

DRUGS (1)
  1. SINGULAIR [Suspect]
     Indication: RHINITIS ALLERGIC
     Dosage: 4 MG/DAILY/PO
     Route: 048
     Dates: start: 20051101, end: 20051201

REACTIONS (2)
  - OTITIS MEDIA [None]
  - UPPER RESPIRATORY TRACT INFECTION [None]
